FAERS Safety Report 4967842-5 (Version None)
Quarter: 2006Q2

REPORT INFORMATION
  Report Type: 
  Country: None (occurrence: None)
  Receive Date: 20060404
  Receipt Date: 20060327
  Transmission Date: 20061013
  Serious: Yes (Other)
  Sender: FDA-Public Use
  Company Number: 2006ADE/DICLO-006

PATIENT
  Age: 30 Year
  Sex: Male

DRUGS (1)
  1. DICLOFENAC, RATIOPHARM TO TABLETTEN [Suspect]
     Indication: BACK PAIN
     Dosage: 50MG X/AS NEEDED, ORAL
     Route: 048
     Dates: start: 20050101

REACTIONS (1)
  - ANGIONEUROTIC OEDEMA [None]
